FAERS Safety Report 16159549 (Version 1)
Quarter: 2019Q2

REPORT INFORMATION
  Report Type: Spontaneous
  Country: US (occurrence: US)
  Receive Date: 20190404
  Receipt Date: 20190404
  Transmission Date: 20190711
  Serious: No
  Sender: FDA-Public Use
  Company Number: US-SA-2019SA088752

PATIENT
  Age: 68 Year
  Sex: Female

DRUGS (1)
  1. PRALUENT [Suspect]
     Active Substance: ALIROCUMAB
     Indication: BLOOD CHOLESTEROL
     Dosage: 150 MG
     Dates: start: 20190214

REACTIONS (11)
  - Herpes zoster [Unknown]
  - Condition aggravated [Unknown]
  - Discomfort [Unknown]
  - Pain [Unknown]
  - Swelling [Unknown]
  - Burning sensation [Unknown]
  - Rash pruritic [Unknown]
  - Erythema [Recovered/Resolved]
  - Pruritus [Unknown]
  - Product dose omission [Unknown]
  - Nerve injury [Unknown]

NARRATIVE: CASE EVENT DATE: 2019
